FAERS Safety Report 9186299 (Version 2)
Quarter: 2013Q2

REPORT INFORMATION
  Report Type: Spontaneous
  Country: BH (occurrence: BH)
  Receive Date: 20130325
  Receipt Date: 20130424
  Transmission Date: 20140414
  Serious: Yes (Life-Threatening, Hospitalization)
  Sender: FDA-Public Use
  Company Number: BH-GLAXOSMITHKLINE-B0877282A

PATIENT
  Age: 37 Year
  Sex: Male

DRUGS (1)
  1. ZINNAT [Suspect]
     Indication: UPPER RESPIRATORY TRACT INFECTION
     Dosage: 500MG TWICE PER DAY
     Route: 065
     Dates: start: 20130309, end: 20130309

REACTIONS (6)
  - Shock [Recovered/Resolved]
  - Choking [Recovered/Resolved]
  - Dyspnoea [Recovered/Resolved]
  - Rash [Recovered/Resolved]
  - Pruritus [Recovered/Resolved]
  - Chest pain [Recovered/Resolved]
